FAERS Safety Report 10469565 (Version 1)
Quarter: 2014Q3

REPORT INFORMATION
  Report Type: Spontaneous
  Country: US (occurrence: None)
  Receive Date: 20140922
  Receipt Date: 20140922
  Transmission Date: 20150326
  Serious: No
  Sender: FDA-Public Use
  Company Number: None

PATIENT
  Age: 16 Year
  Sex: Female
  Weight: 58.97 kg

DRUGS (2)
  1. CVS ADULT DM MAXIMUM MULTI-SYMPT [Suspect]
     Active Substance: DEXTROMETHORPHAN\GUAIFENESIN
     Indication: RESPIRATORY TRACT CONGESTION
     Dosage: 1  20ML DOSAGE CUP FULL?EVERY 4 HOURS ?TAKEN BY MOUTH
     Route: 048
     Dates: start: 20140918, end: 20140919
  2. CVS ADULT DM MAXIMUM MULTI-SYMPT [Suspect]
     Active Substance: DEXTROMETHORPHAN\GUAIFENESIN
     Indication: SECRETION DISCHARGE
     Dosage: 1  20ML DOSAGE CUP FULL?EVERY 4 HOURS ?TAKEN BY MOUTH
     Route: 048
     Dates: start: 20140918, end: 20140919

REACTIONS (4)
  - Euphoric mood [None]
  - Confusional state [None]
  - Disturbance in attention [None]
  - Insomnia [None]

NARRATIVE: CASE EVENT DATE: 20140919
